FAERS Safety Report 6331076 (Version 3)
Quarter: 2012Q4

REPORT INFORMATION
  Report Type: 
  Country: US (occurrence: US)
  Receive Date: 20070612
  Receipt Date: 20121105
  Transmission Date: 20130627
  Serious: Yes (Hospitalization, Other)
  Sender: FDA-Public Use
  Company Number: US-AMGEN-STX227562

PATIENT
  Age: 78 Year
  Sex: Female

DRUGS (2)
  1. ENBREL [Suspect]
     Indication: RHEUMATOID ARTHRITIS
     Dosage: 50 mg, qwk
     Route: 058
     Dates: start: 20020401
  2. METHOTREXATE [Concomitant]
     Dosage: UNK
     Route: 065

REACTIONS (17)
  - Hip fracture [Recovered/Resolved]
  - Fracture delayed union [Recovered/Resolved]
  - Device breakage [Recovered/Resolved]
  - Femur fracture [Recovered/Resolved]
  - Retroperitoneal haematoma [Not Recovered/Not Resolved]
  - Thrombosis [Recovered/Resolved]
  - Gastrointestinal infection [Recovered/Resolved]
  - Sepsis [Recovered/Resolved]
  - Anaemia [Unknown]
  - Blister [Recovered/Resolved]
  - Fall [Recovered/Resolved]
  - Nerve injury [Not Recovered/Not Resolved]
  - Haematoma [Not Recovered/Not Resolved]
  - Musculoskeletal disorder [Not Recovered/Not Resolved]
  - Animal scratch [Not Recovered/Not Resolved]
  - Wound haemorrhage [Not Recovered/Not Resolved]
  - Injection site pain [Recovered/Resolved]
